FAERS Safety Report 21324753 (Version 3)
Quarter: 2025Q2

REPORT INFORMATION
  Report Type: Spontaneous
  Country: DE (occurrence: DE)
  Receive Date: 20220912
  Receipt Date: 20250626
  Transmission Date: 20250717
  Serious: No
  Sender: UCB
  Company Number: DE-UCBSA-2022053060

PATIENT
  Sex: Female
  Weight: 70 kg

DRUGS (1)
  1. NEUPRO [Suspect]
     Active Substance: ROTIGOTINE
     Indication: Parkinson^s disease
     Route: 062
     Dates: start: 202102

REACTIONS (1)
  - Product adhesion issue [Unknown]
